FAERS Safety Report 17153485 (Version 1)
Quarter: 2019Q4

REPORT INFORMATION
  Report Type: Report from Study
  Country: None (occurrence: US)
  Receive Date: 20191213
  Receipt Date: 20191213
  Transmission Date: 20200122
  Serious: Yes (Hospitalization)
  Sender: FDA-Public Use
  Company Number: US-ABBVIE-19K-163-3173332-00

PATIENT
  Age: 73 Year
  Sex: Male

DRUGS (1)
  1. VENCLEXTA [Suspect]
     Active Substance: VENETOCLAX
     Indication: REFRACTORY CYTOPENIA WITH MULTILINEAGE DYSPLASIA
     Route: 048
     Dates: start: 20190109

REACTIONS (2)
  - Off label use [Unknown]
  - Refractory cytopenia with multilineage dysplasia [Not Recovered/Not Resolved]

NARRATIVE: CASE EVENT DATE: 2019
